FAERS Safety Report 7132597-5 (Version None)
Quarter: 2010Q4

REPORT INFORMATION
  Report Type: 
  Country: None (occurrence: None)
  Receive Date: 20101130
  Receipt Date: 20101130
  Transmission Date: 20110411
  Serious: Yes (Life-Threatening)
  Sender: FDA-Public Use
  Company Number: None

PATIENT
  Sex: Male
  Weight: 80.7403 kg

DRUGS (1)
  1. PROPOXYPHENE HCL AND ACETAMINOPHEN [Suspect]
     Dosage: 3 A DAY OR AS NEEDED

REACTIONS (5)
  - DIZZINESS [None]
  - HEADACHE [None]
  - PALPITATIONS [None]
  - PRODUCT QUALITY ISSUE [None]
  - VOMITING [None]
